FAERS Safety Report 25428405 (Version 1)
Quarter: 2025Q2

REPORT INFORMATION
  Report Type: Spontaneous
  Country: US (occurrence: US)
  Receive Date: 20250612
  Receipt Date: 20250612
  Transmission Date: 20250716
  Serious: No
  Sender: SANOFI AVENTIS
  Company Number: US-SA-2025SA165775

PATIENT
  Age: 75 Year
  Sex: Male

DRUGS (1)
  1. CAPRELSA [Suspect]
     Active Substance: VANDETANIB
     Indication: Thyroid cancer
     Dosage: 100 MG, QD
     Route: 048
     Dates: start: 202211

REACTIONS (4)
  - Cell marker increased [Unknown]
  - Lumbar spinal stenosis [Unknown]
  - Hernia [Unknown]
  - Back pain [Unknown]

NARRATIVE: CASE EVENT DATE: 20240901
